FAERS Safety Report 8600485-0 (Version None)
Quarter: 2012Q3

REPORT INFORMATION
  Report Type: 
  Country: None (occurrence: None)
  Receive Date: 20120802
  Receipt Date: 20120719
  Transmission Date: 20120928
  Serious: Yes (Death, Other)
  Sender: FDA-Public Use
  Company Number: 2012MA008161

PATIENT
  Age: 73 Year
  Sex: Male

DRUGS (3)
  1. LIPIODOL (IODIZED OIL) [Suspect]
  2. MFOLFOX6 [Concomitant]
  3. EPIRUBICIN HYDROCHLORIDE [Suspect]
     Indication: RECTAL CANCER METASTATIC
     Dosage: 40 MG;   ;IART
     Route: 013

REACTIONS (4)
  - ALPHA 1 FOETOPROTEIN INCREASED [None]
  - DISEASE PROGRESSION [None]
  - HEPATIC FAILURE [None]
  - RECTAL CANCER METASTATIC [None]
